FAERS Safety Report 5613972-4 (Version None)
Quarter: 2008Q1

REPORT INFORMATION
  Report Type: 
  Country: None (occurrence: None)
  Receive Date: 20080205
  Receipt Date: 20080129
  Transmission Date: 20080703
  Serious: Yes (Life-Threatening, Hospitalization, Disabling, Other)
  Sender: FDA-Public Use
  Company Number: US-MERCK-0711USA01927

PATIENT
  Age: 78 Year
  Sex: Female

DRUGS (6)
  1. ZETIA [Suspect]
     Indication: BLOOD CHOLESTEROL INCREASED
     Route: 048
     Dates: end: 20071006
  2. ZETIA [Suspect]
     Route: 048
     Dates: start: 20071027
  3. ATENOLOL [Concomitant]
     Route: 048
  4. COUMADIN [Concomitant]
     Route: 048
     Dates: end: 20071001
  5. COUMADIN [Concomitant]
     Route: 048
  6. FOSAMAX [Concomitant]
     Route: 048

REACTIONS (13)
  - ATRIAL FIBRILLATION [None]
  - DEEP VEIN THROMBOSIS [None]
  - DEPRESSION [None]
  - FALL [None]
  - HAEMORRHAGE [None]
  - HYPONATRAEMIA [None]
  - LACERATION [None]
  - MUSCLE SPASMS [None]
  - SUBDURAL HAEMORRHAGE [None]
  - THROMBOPHLEBITIS SUPERFICIAL [None]
  - URINARY TRACT INFECTION [None]
  - VENTRICULAR EXTRASYSTOLES [None]
  - VENTRICULAR TACHYCARDIA [None]
